FAERS Safety Report 6020643-1 (Version None)
Quarter: 2008Q4

REPORT INFORMATION
  Report Type: 
  Country: None (occurrence: None)
  Receive Date: 20081224
  Receipt Date: 20081224
  Transmission Date: 20090506
  Serious: No
  Sender: FDA-Public Use
  Company Number: None

PATIENT
  Sex: Male
  Weight: 110.6777 kg

DRUGS (3)
  1. SERTRALINE HCL [Suspect]
     Indication: ANXIETY
     Dosage: 50 QD
  2. SERTRALINE HCL [Suspect]
     Indication: DYSTHYMIC DISORDER
     Dosage: 50 QD
  3. SERTRALINE HCL [Suspect]
     Indication: FATIGUE
     Dosage: 50 QD

REACTIONS (3)
  - ANXIETY [None]
  - DEPRESSION [None]
  - HOT FLUSH [None]
